FAERS Safety Report 8267953-5 (Version None)
Quarter: 2012Q2

REPORT INFORMATION
  Report Type: 
  Country: None (occurrence: None)
  Receive Date: 20120409
  Receipt Date: 20120402
  Transmission Date: 20120825
  Serious: Yes (Hospitalization, Other)
  Sender: FDA-Public Use
  Company Number: PHHY2010JP47573

PATIENT
  Sex: Male
  Weight: 60 kg

DRUGS (17)
  1. AFINITOR [Suspect]
     Dosage: 10 MG DAILY
     Route: 048
     Dates: start: 20100619, end: 20100709
  2. GASLON [Concomitant]
     Dosage: 120 MG, UNK
     Route: 048
  3. OXINORM [Concomitant]
     Dosage: UNK UKN, UNK
     Route: 048
  4. LENDORMIN [Concomitant]
     Dosage: 0.25 MG, UNK
     Route: 048
  5. DUROTEP JANSSEN [Concomitant]
     Dosage: 16.8 MG, UNK
     Route: 062
  6. RAIPECK [Concomitant]
     Dosage: 200 MG, UNK
     Route: 048
  7. DUROTEP JANSSEN [Concomitant]
     Dosage: 1.47 MG, UNK
     Route: 062
  8. ACETAMINOPHEN [Concomitant]
     Dosage: 1200 MG, UNK
     Route: 048
  9. LASIX [Concomitant]
     Dosage: 40 MG, UNK
     Route: 048
  10. DECADRON [Concomitant]
     Dosage: 2 MG, UNK
     Route: 048
  11. MIYA-BM [Concomitant]
     Dosage: 3 G, UNK
     Route: 048
  12. AFINITOR [Suspect]
     Dosage: 5 MG DAILY
     Route: 048
     Dates: start: 20100722, end: 20100822
  13. AFINITOR [Suspect]
     Dosage: 5 MG DAILY
     Route: 048
     Dates: start: 20100901, end: 20100918
  14. LIVACT [Concomitant]
     Dosage: 12.45 G, UNK
     Route: 048
  15. HEAVY KAMA G [Concomitant]
     Dosage: 2 G, UNK
     Route: 048
  16. AFINITOR [Suspect]
     Indication: METASTATIC RENAL CELL CARCINOMA
     Dosage: 10 MG DAILY
     Route: 048
     Dates: start: 20100521, end: 20100615
  17. STANZOME OD [Concomitant]
     Dosage: 15 MG, UNK
     Route: 048

REACTIONS (7)
  - PLATELET COUNT DECREASED [None]
  - ASPARTATE AMINOTRANSFERASE INCREASED [None]
  - ALANINE AMINOTRANSFERASE INCREASED [None]
  - NEOPLASM PROGRESSION [None]
  - NEOPLASM MALIGNANT [None]
  - METASTASES TO LIVER [None]
  - GAMMA-GLUTAMYLTRANSFERASE INCREASED [None]
